FAERS Safety Report 6756273-3 (Version None)
Quarter: 2010Q2

REPORT INFORMATION
  Report Type: 
  Country: None (occurrence: None)
  Receive Date: 20100603
  Receipt Date: 20100603
  Transmission Date: 20101027
  Serious: Yes (Hospitalization, Other)
  Sender: FDA-Public Use
  Company Number: None

PATIENT
  Age: 41 Year
  Sex: Male
  Weight: 77.1115 kg

DRUGS (1)
  1. DAPTOMYCIN [Suspect]
     Indication: OSTEOMYELITIS
     Dosage: ONCE PER DAY IV DRIP
     Route: 041
     Dates: start: 20080720, end: 20090929

REACTIONS (4)
  - ANXIETY [None]
  - ASTHENIA [None]
  - NAUSEA [None]
  - PANIC ATTACK [None]
